FAERS Safety Report 12632054 (Version 2)
Quarter: 2016Q3

REPORT INFORMATION
  Report Type: Spontaneous
  Country: US (occurrence: US)
  Receive Date: 20160808
  Receipt Date: 20160808
  Transmission Date: 20161109
  Serious: No
  Sender: FDA-Public Use
  Company Number: US-BEH-2016061806

PATIENT
  Sex: Female
  Weight: 72 kg

DRUGS (19)
  1. HIZENTRA [Suspect]
     Active Substance: HUMAN IMMUNOGLOBULIN G
     Indication: HYPOGAMMAGLOBULINAEMIA
     Route: 058
  2. CARAFATE [Concomitant]
     Active Substance: SUCRALFATE
  3. PREDNISONE. [Concomitant]
     Active Substance: PREDNISONE
  4. FORTEO [Concomitant]
     Active Substance: TERIPARATIDE
  5. DEXILANT [Concomitant]
     Active Substance: DEXLANSOPRAZOLE
  6. ACETAMINOPHEN. [Concomitant]
     Active Substance: ACETAMINOPHEN
  7. EPIPEN [Concomitant]
     Active Substance: EPINEPHRINE
  8. ADVAIR HFA [Concomitant]
     Active Substance: FLUTICASONE PROPIONATE\SALMETEROL XINAFOATE
  9. MOXIFLOXACIN. [Concomitant]
     Active Substance: MOXIFLOXACIN
  10. FLONASE [Concomitant]
     Active Substance: FLUTICASONE PROPIONATE
  11. PROAIR HFA [Concomitant]
     Active Substance: ALBUTEROL SULFATE
  12. LOSARTAN. [Concomitant]
     Active Substance: LOSARTAN
  13. CRESTOR [Concomitant]
     Active Substance: ROSUVASTATIN CALCIUM
  14. ATENOLOL. [Concomitant]
     Active Substance: ATENOLOL
  15. LIDOCAINE. [Concomitant]
     Active Substance: LIDOCAINE
  16. LORATADINE. [Concomitant]
     Active Substance: LORATADINE
  17. RANITIDINE. [Concomitant]
     Active Substance: RANITIDINE
  18. KLOR-CON [Concomitant]
     Active Substance: POTASSIUM CHLORIDE
  19. DIPHENHYDRAMINE. [Concomitant]
     Active Substance: DIPHENHYDRAMINE

REACTIONS (1)
  - Sinusitis [Unknown]
